FAERS Safety Report 25420952 (Version 7)
Quarter: 2025Q4

REPORT INFORMATION
  Report Type: Spontaneous
  Country: US (occurrence: US)
  Receive Date: 20250611
  Receipt Date: 20251121
  Transmission Date: 20260118
  Serious: Yes (Other)
  Sender: BRISTOL-MYERS SQUIBB COMPANY
  Company Number: US-BRISTOL-MYERS SQUIBB COMPANY-2025-082583

PATIENT
  Age: 66 Year
  Sex: Female

DRUGS (1)
  1. LENALIDOMIDE [Suspect]
     Active Substance: LENALIDOMIDE
     Indication: Plasma cell myeloma
     Dosage: FREQUENCY: MONDAY, WEDNESDAY AND FRIDAY
     Route: 048

REACTIONS (12)
  - Musculoskeletal discomfort [Unknown]
  - Musculoskeletal stiffness [Not Recovered/Not Resolved]
  - Skin discolouration [Not Recovered/Not Resolved]
  - Chest pain [Not Recovered/Not Resolved]
  - Pruritus [Recovering/Resolving]
  - Therapy interrupted [Unknown]
  - Headache [Recovering/Resolving]
  - Diarrhoea [Recovering/Resolving]
  - Pain [Recovering/Resolving]
  - Dizziness [Recovering/Resolving]
  - Neuropathy peripheral [Recovering/Resolving]
  - Rash [Recovering/Resolving]

NARRATIVE: CASE EVENT DATE: 20250609
